FAERS Safety Report 10244064 (Version 1)
Quarter: 2014Q2

REPORT INFORMATION
  Report Type: Spontaneous
  Country: US (occurrence: US)
  Receive Date: 20140618
  Receipt Date: 20140618
  Transmission Date: 20141212
  Serious: Yes (Hospitalization)
  Sender: FDA-Public Use
  Company Number: US-SA-2014SA076870

PATIENT
  Age: 60 Year
  Sex: Female

DRUGS (7)
  1. TAXOTERE [Suspect]
     Indication: PRODUCT USED FOR UNKNOWN INDICATION
     Route: 065
  2. XELJANZ [Suspect]
     Indication: RHEUMATOID ARTHRITIS
     Route: 048
     Dates: start: 20140121, end: 20140304
  3. SYNTHROID [Concomitant]
  4. CYTOMEL [Concomitant]
  5. VESICARE [Concomitant]
  6. VITAMIN D [Concomitant]
  7. NAPROXEN [Concomitant]

REACTIONS (1)
  - Breast cancer [Not Recovered/Not Resolved]
